FAERS Safety Report 12253748 (Version 1)
Quarter: 2016Q2

REPORT INFORMATION
  Report Type: Spontaneous
  Country: FR (occurrence: FR)
  Receive Date: 20160411
  Receipt Date: 20160411
  Transmission Date: 20160815
  Serious: Yes (Hospitalization, Other)
  Sender: FDA-Public Use
  Company Number: FR-BRISTOL-MYERS SQUIBB COMPANY-BMS-2016-025858

PATIENT
  Age: 73 Year
  Sex: Female

DRUGS (6)
  1. COUMADINE [Suspect]
     Active Substance: WARFARIN SODIUM
     Dosage: 7 MG, QD
     Route: 048
     Dates: start: 20160219
  2. COUMADINE [Suspect]
     Active Substance: WARFARIN SODIUM
     Dosage: 7 MG, UNK
     Route: 048
     Dates: start: 20160217
  3. COUMADINE [Suspect]
     Active Substance: WARFARIN SODIUM
     Dosage: 7 MG, QD
     Route: 048
     Dates: start: 20160215
  4. AUGMENTIN [Suspect]
     Active Substance: AMOXICILLIN\CLAVULANATE POTASSIUM
     Indication: ERYSIPELAS
     Dosage: UNK
     Route: 048
     Dates: start: 20160114, end: 20160124
  5. COUMADINE [Suspect]
     Active Substance: WARFARIN SODIUM
     Indication: ATRIAL FIBRILLATION
     Dosage: 10 MG, QD
     Route: 048
     Dates: end: 201602
  6. COUMADINE [Suspect]
     Active Substance: WARFARIN SODIUM
     Dosage: 2 MG, QD
     Route: 048
     Dates: start: 20160213

REACTIONS (4)
  - Erysipelas [Unknown]
  - Overdose [Unknown]
  - International normalised ratio increased [Recovered/Resolved]
  - Spontaneous haematoma [Recovered/Resolved]

NARRATIVE: CASE EVENT DATE: 20160210
